FAERS Safety Report 11504180 (Version 1)
Quarter: 2015Q3

REPORT INFORMATION
  Report Type: Spontaneous
  Country: US (occurrence: US)
  Receive Date: 20150914
  Receipt Date: 20150914
  Transmission Date: 20151125
  Serious: No
  Sender: FDA-Public Use
  Company Number: GXBR2015US001870

PATIENT
  Age: 58 Year
  Sex: Male

DRUGS (1)
  1. LANSOPRAZOLE. [Suspect]
     Active Substance: LANSOPRAZOLE
     Indication: GASTROOESOPHAGEAL REFLUX DISEASE
     Dosage: 30 MG, UNK
     Route: 048
     Dates: start: 20150515

REACTIONS (7)
  - Dizziness [Recovering/Resolving]
  - Malaise [Not Recovered/Not Resolved]
  - Dry mouth [Recovering/Resolving]
  - Blood cholesterol increased [Not Recovered/Not Resolved]
  - Tongue disorder [Recovered/Resolved]
  - Gastrooesophageal reflux disease [Recovering/Resolving]
  - Insomnia [Unknown]
